FAERS Safety Report 6154157-5 (Version None)
Quarter: 2009Q2

REPORT INFORMATION
  Report Type: 
  Country: None (occurrence: None)
  Receive Date: 20090414
  Receipt Date: 20090408
  Transmission Date: 20091009
  Serious: Yes (Other)
  Sender: FDA-Public Use
  Company Number: US-ROCHE-619776

PATIENT
  Sex: Male
  Weight: 79.4 kg

DRUGS (2)
  1. CAPECITABINE [Suspect]
     Dosage: OTHER INDICATION: LUNG CANCER 4 TABS (500 MG) RECEIVED FOR 14 DAYS, 1 WEEK OFF (21 DAY CYCLE)
     Route: 048
     Dates: start: 20081211, end: 20090307
  2. BEVACIZUMAB [Suspect]
     Dosage: OTHER INDICATION: LUNG CANCER
     Route: 042
     Dates: start: 20081201, end: 20090210

REACTIONS (4)
  - DYSPNOEA [None]
  - FATIGUE [None]
  - METASTASES TO LUNG [None]
  - TACHYCARDIA [None]
